FAERS Safety Report 25414805 (Version 1)
Quarter: 2025Q2

REPORT INFORMATION
  Report Type: Spontaneous
  Country: BR (occurrence: BR)
  Receive Date: 20250609
  Receipt Date: 20250609
  Transmission Date: 20250717
  Serious: Yes (Other)
  Sender: NOVARTIS
  Company Number: BR-002147023-NVSC2025BR089040

PATIENT

DRUGS (2)
  1. IMATINIB [Suspect]
     Active Substance: IMATINIB
     Indication: Product used for unknown indication
     Route: 065
  2. DASATINIB [Concomitant]
     Active Substance: DASATINIB
     Indication: Product used for unknown indication
     Route: 065

REACTIONS (7)
  - Retinitis pigmentosa [Unknown]
  - Blindness [Unknown]
  - Drug ineffective [Unknown]
  - Diarrhoea [Unknown]
  - Anaemia [Unknown]
  - Skin hypopigmentation [Unknown]
  - Hair colour changes [Unknown]
